FAERS Safety Report 18131083 (Version 1)
Quarter: 2020Q3

REPORT INFORMATION
  Report Type: Report from Study
  Country: GB (occurrence: GB)
  Receive Date: 20200810
  Receipt Date: 20200810
  Transmission Date: 20201103
  Serious: Yes (Other)
  Sender: FDA-Public Use
  Company Number: GB-PFIZER INC-2020300242

PATIENT
  Age: 70 Year
  Sex: Female

DRUGS (2)
  1. METHOTREXATE SODIUM. [Suspect]
     Active Substance: METHOTREXATE SODIUM
     Dosage: UNKNOWN
     Route: 065
  2. BENEPALI [Suspect]
     Active Substance: ETANERCEPT
     Indication: RHEUMATOID ARTHRITIS
     Dosage: 50 MG, WEEKLY
     Route: 058

REACTIONS (9)
  - Exposure to communicable disease [Unknown]
  - Loss of personal independence in daily activities [Recovering/Resolving]
  - Wrong technique in product usage process [Unknown]
  - Injection site pain [Unknown]
  - Gait disturbance [Unknown]
  - Fatigue [Recovering/Resolving]
  - Suspected COVID-19 [Unknown]
  - Anosmia [Recovering/Resolving]
  - Ageusia [Recovering/Resolving]
